FAERS Safety Report 5139887-6 (Version None)
Quarter: 2006Q4

REPORT INFORMATION
  Report Type: 
  Country: None (occurrence: None)
  Receive Date: 20061025
  Receipt Date: 20061025
  Transmission Date: 20070319
  Serious: Yes (Other)
  Sender: FDA-Public Use
  Company Number: None

PATIENT
  Age: 62 Year
  Sex: Male
  Weight: 133.6 kg

DRUGS (2)
  1. MOTRIN [Suspect]
  2. IBUPROFEN [Concomitant]

REACTIONS (1)
  - ABDOMINAL DISCOMFORT [None]
